FAERS Safety Report 7919053-9 (Version None)
Quarter: 2011Q4

REPORT INFORMATION
  Report Type: 
  Country: None (occurrence: None)
  Receive Date: 20111116
  Receipt Date: 20111107
  Transmission Date: 20120403
  Serious: Yes (Disabling)
  Sender: FDA-Public Use
  Company Number: CA-ASTRAZENECA-2011SE67332

PATIENT
  Age: 74 Year
  Sex: Female

DRUGS (5)
  1. LOVAZA [Concomitant]
  2. WARFARIN SODIUM [Concomitant]
  3. LOVASTATIN [Suspect]
     Route: 048
  4. COZAAR [Concomitant]
  5. CRESTOR [Suspect]
     Route: 048

REACTIONS (5)
  - PARAESTHESIA [None]
  - MYALGIA [None]
  - PAIN [None]
  - FATIGUE [None]
  - PAIN IN EXTREMITY [None]
